FAERS Safety Report 6838145-9 (Version None)
Quarter: 2010Q3

REPORT INFORMATION
  Report Type: 
  Country: None (occurrence: None)
  Receive Date: 20100713
  Receipt Date: 20070531
  Transmission Date: 20110219
  Serious: No
  Sender: FDA-Public Use
  Company Number: US-PFIZER INC-2007045982

PATIENT
  Sex: Female
  Weight: 63.5 kg

DRUGS (3)
  1. CHANTIX [Suspect]
     Indication: SMOKING CESSATION THERAPY
     Dates: start: 20070510
  2. OMACOR [Concomitant]
     Indication: BLOOD TRIGLYCERIDES INCREASED
  3. LEXAPRO [Concomitant]

REACTIONS (6)
  - DISORIENTATION [None]
  - DYSPEPSIA [None]
  - FLATULENCE [None]
  - IRRITABILITY [None]
  - MALAISE [None]
  - NAUSEA [None]
